FAERS Safety Report 5535116-X (Version None)
Quarter: 2007Q4

REPORT INFORMATION
  Report Type: 
  Country: None (occurrence: None)
  Receive Date: 20071203
  Receipt Date: 20071123
  Transmission Date: 20080405
  Serious: Yes (Hospitalization, Other)
  Sender: FDA-Public Use
  Company Number: 2006-03-1424

PATIENT
  Age: 29 Year
  Sex: Male
  Weight: 107.9 kg

DRUGS (7)
  1. NASONEX [Suspect]
     Indication: CHRONIC SINUSITIS
     Dosage: 2 DF;BID;NAS
     Route: 045
     Dates: start: 20060301
  2. NASONEX [Suspect]
     Indication: SINUSITIS
     Dosage: 2 DF;BID;NAS
     Route: 045
     Dates: start: 20060301
  3. BETA BLOCKING AGENTS [Concomitant]
  4. FLUTICASONE PROPIONATE [Concomitant]
  5. BISOPROLOL [Concomitant]
  6. FLECAINIDE ACETATE [Concomitant]
  7. PRAVASTATIN [Concomitant]

REACTIONS (5)
  - ATRIAL FIBRILLATION [None]
  - ATRIAL FLUTTER [None]
  - CONDITION AGGRAVATED [None]
  - FALL [None]
  - SYNCOPE [None]
